FAERS Safety Report 19407719 (Version 1)
Quarter: 2021Q2

REPORT INFORMATION
  Report Type: Report from Study
  Country: None (occurrence: CA)
  Receive Date: 20210612
  Receipt Date: 20210612
  Transmission Date: 20210717
  Serious: Yes (Death, Hospitalization)
  Sender: FDA-Public Use
  Company Number: CA-ABBVIE-21K-028-3942628-00

PATIENT
  Age: 80 Year
  Sex: Male

DRUGS (1)
  1. LUPRON DEPOT [Suspect]
     Active Substance: LEUPROLIDE ACETATE
     Indication: PROSTATE CANCER
     Route: 030
     Dates: start: 20200302, end: 20210218

REACTIONS (3)
  - Metastases to bone [Unknown]
  - Pain [Unknown]
  - Death [Fatal]

NARRATIVE: CASE EVENT DATE: 202104
